FAERS Safety Report 17276839 (Version 2)
Quarter: 2022Q2

REPORT INFORMATION
  Report Type: Spontaneous
  Country: US (occurrence: US)
  Receive Date: 20200116
  Receipt Date: 20220513
  Transmission Date: 20220721
  Serious: No
  Sender: FDA-Public Use
  Company Number: US-PFIZER INC-2020019031

PATIENT
  Age: 39 Year
  Sex: Male

DRUGS (2)
  1. DOXYCYCLINE HYCLATE [Suspect]
     Active Substance: DOXYCYCLINE HYCLATE
     Dosage: UNK
  2. CELONTIN [Concomitant]
     Active Substance: METHSUXIMIDE
     Dosage: 300 MG,1 CAP AM, 1 CAP MID DAY, 1 CAP PM

REACTIONS (2)
  - Drug hypersensitivity [Unknown]
  - Nausea [Unknown]
